FAERS Safety Report 6140347-4 (Version None)
Quarter: 2009Q1

REPORT INFORMATION
  Report Type: 
  Country: None (occurrence: None)
  Receive Date: 20090330
  Receipt Date: 20090313
  Transmission Date: 20090719
  Serious: Yes (Death)
  Sender: FDA-Public Use
  Company Number: B0566340A

PATIENT

DRUGS (4)
  1. MELPHALAN (FORMULATION UNKNOWN) (GENERIC) (MELPHALAN) [Suspect]
     Indication: MULTIPLE MYELOMA
     Dosage: 140 MG/M2 INTRAVENOUS
     Route: 042
  2. MYLERAN [Suspect]
     Indication: MULTIPLE MYELOMA
     Dosage: 3.2 MG/KG INTRAVENOUS
     Route: 042
  3. GRANULOCYTE COL.STIM.FACT (FORMULATION UNKNOWN) (GRANULOCYTE COL.STIM. [Suspect]
     Dosage: SUBCUTANEOUS
     Route: 058
  4. PHENYTOIN [Concomitant]

REACTIONS (1)
  - SEPTIC SHOCK [None]
